FAERS Safety Report 23693465 (Version 3)
Quarter: 2024Q2

REPORT INFORMATION
  Report Type: Spontaneous
  Country: US (occurrence: US)
  Receive Date: 20240401
  Receipt Date: 20240426
  Transmission Date: 20240716
  Serious: Yes (Disabling, Other)
  Sender: FDA-Public Use
  Company Number: US-SANOFI-01992650

PATIENT
  Age: 69 Year
  Sex: Male

DRUGS (1)
  1. LANTUS SOLOSTAR [Suspect]
     Active Substance: INSULIN GLARGINE
     Indication: Diabetes mellitus
     Dosage: UNK, QD (TAKES 54 TO 55 UNITS ONCE A DAY, DEPENDING ON HIS BLOOD SUGAR LEVEL)
     Dates: start: 2019

REACTIONS (4)
  - Hip fracture [Unknown]
  - Blood glucose increased [Unknown]
  - Device ineffective [Unknown]
  - Blood glucose decreased [Unknown]

NARRATIVE: CASE EVENT DATE: 20240318
